FAERS Safety Report 7042064-5 (Version None)
Quarter: 2010Q4

REPORT INFORMATION
  Report Type: 
  Country: None (occurrence: None)
  Receive Date: 20101013
  Receipt Date: 20100804
  Transmission Date: 20110411
  Serious: No
  Sender: FDA-Public Use
  Company Number: US-ASTRAZENECA-2010SE36459

PATIENT
  Age: 71 Year
  Sex: Female
  Weight: 114.8 kg

DRUGS (10)
  1. SYMBICORT [Suspect]
     Indication: CHRONIC OBSTRUCTIVE PULMONARY DISEASE
     Dosage: 160/4.5 UG BID
     Route: 055
     Dates: start: 20100403
  2. COMBIVENT [Concomitant]
  3. BENICAR [Concomitant]
  4. METOPROLOL [Concomitant]
  5. ISOSORBIDE [Concomitant]
  6. LIPITOR [Concomitant]
  7. ZETIA [Concomitant]
  8. ZOCOR [Concomitant]
  9. ALBUTEROL [Concomitant]
  10. TOPROL-XL [Concomitant]

REACTIONS (2)
  - EPISTAXIS [None]
  - HAEMOPTYSIS [None]
